FAERS Safety Report 10472701 (Version 2)
Quarter: 2014Q4

REPORT INFORMATION
  Report Type: Spontaneous
  Country: US (occurrence: None)
  Receive Date: 20140922
  Receipt Date: 20141107
  Transmission Date: 20150528
  Serious: Yes (Hospitalization)
  Sender: FDA-Public Use
  Company Number: 2014-US-011838

PATIENT
  Age: 54 Year
  Sex: Female

DRUGS (20)
  1. ADVAIR DISKUS [Concomitant]
     Active Substance: FLUTICASONE PROPIONATE\SALMETEROL XINAFOATE
  2. XOPENEX (LEVOSALBUTAMOL HYDROCHLORIDE) [Concomitant]
  3. XYREM [Suspect]
     Active Substance: SODIUM OXYBATE
     Indication: NARCOLEPSY
     Route: 048
     Dates: start: 200606, end: 200607
  4. PROTONIX [Concomitant]
     Active Substance: PANTOPRAZOLE SODIUM
  5. CONCERTA (METHYLPHENIDATE HYDROCHLORIDE) [Concomitant]
  6. BYSTOLIC [Concomitant]
     Active Substance: NEBIVOLOL HYDROCHLORIDE
  7. DYMISTA NASAL SPRAY (AZELASTINE HYDROCHLORIDE) [Concomitant]
  8. ENBREL [Concomitant]
     Active Substance: ETANERCEPT
  9. AZITHROMYCIN [Concomitant]
     Active Substance: AZITHROMYCIN ANHYDROUS
  10. XYREM [Suspect]
     Active Substance: SODIUM OXYBATE
     Indication: CATAPLEXY
     Route: 048
     Dates: start: 200606, end: 200607
  11. MIRAPEX [Concomitant]
     Active Substance: PRAMIPEXOLE DIHYDROCHLORIDE
  12. AMLODIPINE (AMLODIPINE BESILATE) [Concomitant]
  13. NITRO-DUR (GLYCERYL TRINITRATE) [Concomitant]
     Active Substance: NITROGLYCERIN
  14. PROVIGIL [Concomitant]
     Active Substance: MODAFINIL
  15. LEVOTHYROXINE SODIUM. [Concomitant]
     Active Substance: LEVOTHYROXINE SODIUM
  16. ZYFLO (ZILEUTON) [Concomitant]
  17. CYMBALTA [Concomitant]
     Active Substance: DULOXETINE HYDROCHLORIDE
  18. FOLIC ACID. [Concomitant]
     Active Substance: FOLIC ACID
  19. OTREXUP (METHOTREXATE SODIUM) [Concomitant]
  20. HIZENTRA (IMMUNOGLOBULIN G HUMAN) [Concomitant]

REACTIONS (2)
  - Asthma [None]
  - Pneumonia [None]

NARRATIVE: CASE EVENT DATE: 201408
